FAERS Safety Report 7284083-X (Version None)
Quarter: 2011Q1

REPORT INFORMATION
  Report Type: 
  Country: None (occurrence: None)
  Receive Date: 20110209
  Receipt Date: 20100420
  Transmission Date: 20110831
  Serious: No
  Sender: FDA-Public Use
  Company Number: US-PFIZER INC-2010050638

PATIENT
  Sex: Male
  Weight: 70.295 kg

DRUGS (2)
  1. CADUET [Suspect]
     Indication: BLOOD CHOLESTEROL INCREASED
  2. CADUET [Suspect]
     Indication: HYPERTENSION
     Dosage: 10/10 MG, DAILY
     Route: 048
     Dates: start: 20090101

REACTIONS (4)
  - RASH [None]
  - SWELLING [None]
  - PRURITUS [None]
  - ABDOMINAL DISCOMFORT [None]
